FAERS Safety Report 25519715 (Version 1)
Quarter: 2025Q3

REPORT INFORMATION
  Report Type: Spontaneous
  Country: EU (occurrence: EU)
  Receive Date: 20250704
  Receipt Date: 20250704
  Transmission Date: 20251020
  Serious: Yes (Other)
  Sender: ABBVIE
  Company Number: EU-ABBVIE-6357747

PATIENT

DRUGS (1)
  1. SILODOSIN [Suspect]
     Active Substance: SILODOSIN
     Indication: Urinary tract disorder
     Route: 048

REACTIONS (3)
  - Urinary retention [Unknown]
  - Dysuria [Unknown]
  - Urinary tract infection [Unknown]
